FAERS Safety Report 25698033 (Version 1)
Quarter: 2025Q3

REPORT INFORMATION
  Report Type: Spontaneous
  Country: GB (occurrence: GB)
  Receive Date: 20250819
  Receipt Date: 20250819
  Transmission Date: 20251020
  Serious: Yes (Other)
  Sender: TEVA
  Company Number: GB-MHRA-TPP46171418C6118765YC1754903392276

PATIENT
  Age: 82 Year
  Sex: Male
  Weight: 91 kg

DRUGS (2)
  1. AMLODIPINE [Suspect]
     Active Substance: AMLODIPINE BESYLATE
     Indication: Product used for unknown indication
     Dosage: IN THE MORNING TO REDUCE BLOOD ...
     Route: 065
     Dates: start: 20250609
  2. LACTULOSE [Concomitant]
     Active Substance: LACTULOSE
     Indication: Product used for unknown indication
     Dosage: DAILY DOSAGE: 30ML

REACTIONS (1)
  - Joint swelling [Recovered/Resolved]
